FAERS Safety Report 6626324-5 (Version None)
Quarter: 2010Q1

REPORT INFORMATION
  Report Type: 
  Country: None (occurrence: None)
  Receive Date: 20100310
  Receipt Date: 20100301
  Transmission Date: 20100710
  Serious: Yes (Other)
  Sender: FDA-Public Use
  Company Number: DE-WYE-G05669510

PATIENT
  Sex: Female

DRUGS (1)
  1. TREVILOR [Suspect]
     Dosage: INITIALLY 75 MG PER DAY, THEN ALSO SOMETIMES 150 MG ONE TIME PER DAY
     Route: 048
     Dates: start: 20030101

REACTIONS (7)
  - DEPENDENCE [None]
  - DIZZINESS [None]
  - DRUG WITHDRAWAL SYNDROME [None]
  - HEADACHE [None]
  - HYPERHIDROSIS [None]
  - NAUSEA [None]
  - PAROSMIA [None]
